FAERS Safety Report 5957748-7 (Version None)
Quarter: 2008Q4

REPORT INFORMATION
  Report Type: 
  Country: None (occurrence: None)
  Receive Date: 20081107
  Receipt Date: 20081031
  Transmission Date: 20090506
  Serious: Yes (Hospitalization)
  Sender: FDA-Public Use
  Company Number: 2008BI027192

PATIENT
  Age: 52 Year
  Sex: Female

DRUGS (1)
  1. AVONEX [Suspect]
     Dosage: IM; 30 UG;QW; IM; 30 UG; IM
     Route: 030
     Dates: start: 20080115

REACTIONS (2)
  - COMA [None]
  - OVERDOSE [None]
